FAERS Safety Report 9474631 (Version 1)
Quarter: 2013Q3

REPORT INFORMATION
  Report Type: Spontaneous
  Country: US (occurrence: US)
  Receive Date: 20130823
  Receipt Date: 20130823
  Transmission Date: 20140515
  Serious: No
  Sender: FDA-Public Use
  Company Number: US-PFIZER INC-2013241232

PATIENT
  Age: 60 Year
  Sex: Female
  Weight: 68.9 kg

DRUGS (5)
  1. AROMASIN [Suspect]
     Indication: BREAST CANCER
     Dosage: 25 MG, 1X/DAY
     Dates: start: 201107, end: 201304
  2. AROMASIN [Suspect]
     Dosage: UNK
     Dates: start: 201305
  3. FOSAMAX [Suspect]
     Indication: BONE DENSITY DECREASED
     Dosage: 70 MG, WEEKLY
     Dates: start: 2013
  4. ZANTAC [Concomitant]
     Indication: GASTRIC ULCER
     Dosage: UNK, AS NEEDED
  5. VITAMIN D [Concomitant]
     Dosage: UNK

REACTIONS (5)
  - Musculoskeletal pain [Unknown]
  - Bone density decreased [Unknown]
  - Dyspepsia [Unknown]
  - Abdominal pain upper [Unknown]
  - Movement disorder [Unknown]
